FAERS Safety Report 9752759 (Version 1)
Quarter: 2013Q4

REPORT INFORMATION
  Report Type: Spontaneous
  Country: US (occurrence: None)
  Receive Date: 20131211
  Receipt Date: 20131211
  Transmission Date: 20140711
  Serious: Yes (Hospitalization, Other)
  Sender: FDA-Public Use
  Company Number: UCM201311-000089

PATIENT
  Age: 59 Year
  Sex: Female

DRUGS (6)
  1. TOPIRAMATE [Suspect]
     Indication: EPILEPSY
  2. LEVETIRACETAM [Suspect]
     Indication: EPILEPSY
  3. PHENYTOIN [Suspect]
     Indication: EPILEPSY
  4. LACOSAMIDE [Suspect]
     Indication: EPILEPSY
  5. GABAPENTIN [Suspect]
     Indication: EPILEPSY
  6. PREDNISONE [Suspect]

REACTIONS (10)
  - Drug ineffective [None]
  - Status epilepticus [None]
  - Confusional state [None]
  - Disorientation [None]
  - Agitation [None]
  - Hallucination, visual [None]
  - Muscle rigidity [None]
  - Myoclonus [None]
  - Anti-GAD antibody positive [None]
  - Cognitive disorder [None]
